FAERS Safety Report 7978638-4 (Version None)
Quarter: 2011Q4

REPORT INFORMATION
  Report Type: 
  Country: None (occurrence: None)
  Receive Date: 20111214
  Receipt Date: 20111205
  Transmission Date: 20120403
  Serious: Yes (Other)
  Sender: FDA-Public Use
  Company Number: US-BAYER-2011-116656

PATIENT
  Age: 33 Year
  Sex: Female

DRUGS (1)
  1. MIRENA [Suspect]
     Indication: CONTRACEPTION
     Dosage: 20 MCG/24HR, CONT
     Route: 015
     Dates: start: 20101001, end: 20111101

REACTIONS (5)
  - PROCEDURAL PAIN [None]
  - MIGRAINE [None]
  - WEIGHT LOSS POOR [None]
  - POST PROCEDURAL HAEMORRHAGE [None]
  - METRORRHAGIA [None]
